FAERS Safety Report 10252386 (Version 2)
Quarter: 2014Q3

REPORT INFORMATION
  Report Type: Spontaneous
  Country: BR (occurrence: BR)
  Receive Date: 20140623
  Receipt Date: 20140702
  Transmission Date: 20150326
  Serious: Yes (Hospitalization)
  Sender: FDA-Public Use
  Company Number: BR-SA-2014SA076452

PATIENT
  Sex: Female
  Weight: 58 kg

DRUGS (2)
  1. LANTUS [Suspect]
     Active Substance: INSULIN GLARGINE
     Indication: TYPE 1 DIABETES MELLITUS
     Dosage: STRENGTH: 3 ML
     Route: 058
     Dates: start: 2006
  2. DEVICE NOS [Concomitant]
     Active Substance: DEVICE
     Indication: DEVICE THERAPY

REACTIONS (5)
  - Diabetic metabolic decompensation [Recovered/Resolved]
  - Migraine [Recovered/Resolved]
  - Neurogenic bladder [Recovered/Resolved]
  - Investigation [Unknown]
  - Condition aggravated [Recovered/Resolved]
